FAERS Safety Report 16126723 (Version 1)
Quarter: 2019Q2

REPORT INFORMATION
  Report Type: Spontaneous
  Country: US (occurrence: US)
  Receive Date: 20190327
  Receipt Date: 20190327
  Transmission Date: 20190711
  Serious: Yes (Other)
  Sender: FDA-Public Use
  Company Number: None

PATIENT
  Age: 8 Year
  Sex: Female
  Weight: 28.35 kg

DRUGS (1)
  1. ZYMADERM MOLLUSCUM [Suspect]
     Active Substance: HOMEOPATHICS
     Indication: SKIN PAPILLOMA
     Route: 061
     Dates: start: 20190303, end: 20190307

REACTIONS (2)
  - Skin bacterial infection [None]
  - Stenotrophomonas infection [None]

NARRATIVE: CASE EVENT DATE: 20190307
